FAERS Safety Report 5344917-2 (Version None)
Quarter: 2007Q2

REPORT INFORMATION
  Report Type: 
  Country: None (occurrence: None)
  Receive Date: 20070416
  Receipt Date: 20070314
  Transmission Date: 20071010
  Serious: No
  Sender: FDA-Public Use
  Company Number: 2007SP000923

PATIENT
  Age: 20 Year
  Sex: Male
  Weight: 113.3993 kg

DRUGS (1)
  1. LUNESTA [Suspect]
     Indication: INSOMNIA
     Dosage: 2 MG; ORAL
     Route: 048
     Dates: start: 20070301, end: 20070301

REACTIONS (2)
  - DYSGEUSIA [None]
  - INSOMNIA [None]
